FAERS Safety Report 6044789-7 (Version None)
Quarter: 2009Q1

REPORT INFORMATION
  Report Type: 
  Country: None (occurrence: None)
  Receive Date: 20090120
  Receipt Date: 20090108
  Transmission Date: 20090719
  Serious: Yes (Other)
  Sender: FDA-Public Use
  Company Number: US-JNJCH-2008010560

PATIENT
  Sex: Male
  Weight: 64.4 kg

DRUGS (3)
  1. BENADRYL [Suspect]
     Indication: HYPERSENSITIVITY
     Dosage: TEXT:1 TABLET 2 TIMES DAILY
     Route: 048
     Dates: start: 20080424, end: 20080425
  2. VITAMIN C ^ELAN^ [Concomitant]
     Indication: DRUG USE FOR UNKNOWN INDICATION
     Dosage: TEXT:UNSPECIFIED ^QD^
     Route: 065
  3. VITAMIN B COMPLEX CAP [Concomitant]
     Indication: DRUG USE FOR UNKNOWN INDICATION
     Dosage: TEXT:UNSPECIFIED ^NOT QD^
     Route: 048

REACTIONS (7)
  - ABDOMINAL PAIN [None]
  - DYSPNOEA EXERTIONAL [None]
  - HYPERHIDROSIS [None]
  - NERVOUSNESS [None]
  - PALPITATIONS [None]
  - RASH PRURITIC [None]
  - VIRAL MYOCARDITIS [None]
